FAERS Safety Report 8782612 (Version 1)
Quarter: 2012Q4

REPORT INFORMATION
  Report Type: 
  Country: US (occurrence: US)
  Receive Date: 20120913
  Receipt Date: 20120913
  Transmission Date: 20130627
  Serious: No
  Sender: FDA-Public Use
  Company Number: US-BAYER-2012-092177

PATIENT

DRUGS (1)
  1. AVELOX I.V. [Suspect]
     Route: 042

REACTIONS (1)
  - Injection site reaction [None]
